FAERS Safety Report 15366519 (Version 1)
Quarter: 2018Q3

REPORT INFORMATION
  Report Type: Spontaneous
  Country: US (occurrence: US)
  Receive Date: 20180831
  Receipt Date: 20180831
  Transmission Date: 20181010
  Serious: Yes (Disabling)
  Sender: FDA-Public Use
  Company Number: None

PATIENT
  Age: 39 Year
  Sex: Male
  Weight: 72 kg

DRUGS (2)
  1. OCEAN SALINE NASAL SPRAY [Suspect]
     Active Substance: SODIUM CHLORIDE
     Indication: SINUS CONGESTION
     Dosage: ?          QUANTITY:3.5 OUNCE(S);?
     Route: 045
     Dates: start: 20180617, end: 20180831
  2. BACTOBAN [Concomitant]

REACTIONS (1)
  - Sinusitis [None]

NARRATIVE: CASE EVENT DATE: 20180726
